FAERS Safety Report 8877028 (Version 1)
Quarter: 2012Q4

REPORT INFORMATION
  Report Type: Spontaneous
  Country: US (occurrence: None)
  Receive Date: 20121024
  Receipt Date: 20121024
  Transmission Date: 20130627
  Serious: Yes (Other)
  Sender: FDA-Public Use
  Company Number: US-1194377

PATIENT
  Sex: Male
  Weight: 92.99 kg

DRUGS (2)
  1. TRAVATAN Z [Suspect]
     Indication: GLAUCOMA
     Route: 047
  2. COMBIGAN [Concomitant]

REACTIONS (3)
  - Chest pain [None]
  - Chest discomfort [None]
  - Ocular hyperaemia [None]
